FAERS Safety Report 9648824 (Version 3)
Quarter: 2014Q3

REPORT INFORMATION
  Report Type: Spontaneous
  Country: US (occurrence: US)
  Receive Date: 20131028
  Receipt Date: 20140703
  Transmission Date: 20150326
  Serious: Yes (Hospitalization, Disabling, Other)
  Sender: FDA-Public Use
  Company Number: US-009507513-1310USA010663

PATIENT
  Sex: Female
  Weight: 106.58 kg

DRUGS (3)
  1. NUVARING [Suspect]
     Active Substance: ETHINYL ESTRADIOL\ETONOGESTREL
     Indication: CONTRACEPTION
     Dosage: 0.12-0.015 MG/24 HR
     Route: 067
     Dates: start: 201101, end: 20111113
  2. EXCEDRIN [Concomitant]
     Active Substance: ACETAMINOPHEN\ASPIRIN\CAFFEINE
     Indication: HEADACHE
     Dosage: 250-250-65 MG/1 TAB Q6HR PRN
     Route: 048
     Dates: start: 2006
  3. CHANTIX [Suspect]
     Active Substance: VARENICLINE TARTRATE
     Indication: SMOKING CESSATION THERAPY
     Dosage: UNK
     Route: 048
     Dates: start: 201110

REACTIONS (20)
  - Cardiac disorder [Unknown]
  - Tonsillectomy [Unknown]
  - Renal surgery [Unknown]
  - Cholecystectomy [Unknown]
  - Gastrooesophageal reflux disease [Unknown]
  - Bronchitis [Unknown]
  - Abdominal pain [Unknown]
  - Nephropathy [Unknown]
  - Phobia [Unknown]
  - Cough [Unknown]
  - Lower limb fracture [Unknown]
  - Arthropathy [Unknown]
  - Cystitis [Unknown]
  - Papilloedema [Unknown]
  - Ear tube insertion [Unknown]
  - Uterine cervical lesion excision [Unknown]
  - Pulmonary embolism [Not Recovered/Not Resolved]
  - Hysterectomy [Unknown]
  - Diarrhoea [Unknown]
  - Abdominal exploration [Unknown]

NARRATIVE: CASE EVENT DATE: 201102
